FAERS Safety Report 6748328 (Version 3)
Quarter: 2014Q2

REPORT INFORMATION
  Report Type: Spontaneous
  Country: US (occurrence: US)
  Receive Date: 20080904
  Receipt Date: 20140605
  Transmission Date: 20141212
  Serious: Yes (Hospitalization, Other)
  Sender: FDA-Public Use
  Company Number: US-BAXTER-2008BH009085

PATIENT
  Age: 1 Year
  Sex: Male

DRUGS (4)
  1. GAMMAGARD S/D [Suspect]
     Indication: BLOOD IMMUNOGLOBULIN M INCREASED
     Route: 042
     Dates: start: 200006, end: 200006
  2. GAMMAGARD S/D [Suspect]
     Indication: X-LINKED CHROMOSOMAL DISORDER
  3. GAMMAGARD S/D [Suspect]
     Indication: OFF LABEL USE
  4. ACYCLOVIR [Concomitant]
     Indication: MALAISE
     Route: 042

REACTIONS (1)
  - Anaphylactic shock [Recovered/Resolved]
